FAERS Safety Report 10031935 (Version 2)
Quarter: 2014Q2

REPORT INFORMATION
  Report Type: Spontaneous
  Country: US (occurrence: US)
  Receive Date: 20140324
  Receipt Date: 20140415
  Transmission Date: 20141212
  Serious: No
  Sender: FDA-Public Use
  Company Number: US-TEVA-470336USA

PATIENT
  Age: 25 Year
  Sex: Female
  Weight: 107.14 kg

DRUGS (3)
  1. PARAGARD 380A [Suspect]
     Indication: CONTRACEPTION
     Route: 015
     Dates: start: 20140303, end: 20140304
  2. PARAGARD 380A [Suspect]
     Route: 015
     Dates: start: 20140318
  3. MULTIVITAMIN [Concomitant]
     Indication: POSTPARTUM STATE

REACTIONS (2)
  - Device expulsion [Recovered/Resolved]
  - Exposure during breast feeding [Unknown]
